FAERS Safety Report 11582516 (Version 2)
Quarter: 2015Q4

REPORT INFORMATION
  Report Type: Report from Study
  Country: US (occurrence: US)
  Receive Date: 20151001
  Receipt Date: 20151009
  Transmission Date: 20160304
  Serious: No
  Sender: FDA-Public Use
  Company Number: US-AMGEN-USASP2015101340

PATIENT
  Sex: Female

DRUGS (1)
  1. ENBREL [Suspect]
     Active Substance: ETANERCEPT
     Indication: RHEUMATOID ARTHRITIS
     Dosage: UNK
     Route: 065
     Dates: start: 2015, end: 20151005

REACTIONS (8)
  - Injection site rash [Unknown]
  - Headache [Unknown]
  - Injection site pain [Unknown]
  - Drug hypersensitivity [Unknown]
  - Erythema [Unknown]
  - Injection site reaction [Unknown]
  - Feeling hot [Unknown]
  - Injection site induration [Unknown]

NARRATIVE: CASE EVENT DATE: 2015
